FAERS Safety Report 4366468-4 (Version None)
Quarter: 2004Q2

REPORT INFORMATION
  Report Type: 
  Country: None (occurrence: None)
  Receive Date: 20040527
  Receipt Date: 20040408
  Transmission Date: 20050107
  Serious: No
  Sender: FDA-Public Use
  Company Number: US-BRISTOL-MYERS SQUIBB COMPANY-12556205

PATIENT
  Age: 61 Year
  Sex: Male
  Weight: 84 kg

DRUGS (4)
  1. ERBITUX [Suspect]
     Indication: COLON CANCER METASTATIC
     Dosage: LOADING DOSE; 500 MG ON 25-MAR-2004, 01-APR-2004, 08-APR-2004
     Route: 042
     Dates: start: 20040318, end: 20040318
  2. BENADRYL [Concomitant]
     Indication: PREMEDICATION
     Dosage: 25-MAR-2004, 01-APR-2004, 08-APR-2004.
     Dates: start: 20040318, end: 20040318
  3. TYLENOL [Concomitant]
     Indication: PREMEDICATION
     Dosage: 25-MAR-2004, 01-APR-2004, 08-APR-2004.
     Dates: start: 20040318, end: 20040318
  4. CAMPTOSAR [Concomitant]
     Dates: start: 20040318, end: 20040318

REACTIONS (3)
  - DRY MOUTH [None]
  - ORAL PAIN [None]
  - RASH [None]
